FAERS Safety Report 14483977 (Version 1)
Quarter: 2018Q1

REPORT INFORMATION
  Report Type: Spontaneous
  Country: US (occurrence: US)
  Receive Date: 20180205
  Receipt Date: 20180205
  Transmission Date: 20180509
  Serious: No
  Sender: FDA-Public Use
  Company Number: US-SUN PHARMACEUTICAL INDUSTRIES LTD-2017US-154333

PATIENT
  Sex: Male

DRUGS (1)
  1. BROMSITE [Suspect]
     Active Substance: BROMFENAC SODIUM
     Indication: EYE DISORDER
     Dosage: TWICE DAILY IN ONE EYE
     Route: 031

REACTIONS (4)
  - Drug prescribing error [Unknown]
  - Product use in unapproved indication [Unknown]
  - Product physical consistency issue [Unknown]
  - Product packaging quantity issue [Unknown]
